FAERS Safety Report 9838503 (Version 1)
Quarter: 2014Q1

REPORT INFORMATION
  Report Type: Spontaneous
  Country: IT (occurrence: IT)
  Receive Date: 20140123
  Receipt Date: 20140123
  Transmission Date: 20141002
  Serious: Yes (Other)
  Sender: FDA-Public Use
  Company Number: IT-PFIZER INC-2014020762

PATIENT
  Age: 40 Year
  Sex: Female

DRUGS (2)
  1. ZOLOFT [Suspect]
     Dosage: 500 MG, TOTAL DOSE
     Route: 048
     Dates: start: 20131209, end: 20131209
  2. DEPAKIN [Suspect]
     Dosage: 3 G, TOTAL DOSE
     Route: 048
     Dates: start: 20131209, end: 20131209

REACTIONS (3)
  - Overdose [Recovered/Resolved]
  - Suicide attempt [Recovered/Resolved]
  - Toxicity to various agents [Recovered/Resolved]
